FAERS Safety Report 23941162 (Version 1)
Quarter: 2024Q2

REPORT INFORMATION
  Report Type: Spontaneous
  Country: FR (occurrence: FR)
  Receive Date: 20240605
  Receipt Date: 20240605
  Transmission Date: 20240715
  Serious: Yes (Hospitalization, Other)
  Sender: FDA-Public Use
  Company Number: None

PATIENT
  Age: 76 Year
  Sex: Male
  Weight: 70 kg

DRUGS (2)
  1. CARBOPLATIN [Suspect]
     Active Substance: CARBOPLATIN
     Indication: Bronchial carcinoma
     Dosage: C1
     Route: 042
     Dates: start: 20240307
  2. PACLITAXEL [Suspect]
     Active Substance: PACLITAXEL
     Indication: Bronchial carcinoma
     Dosage: C1
     Route: 042
     Dates: start: 20240307, end: 20240307

REACTIONS (2)
  - Neutropenia [Recovered/Resolved]
  - Colitis [Recovered/Resolved]

NARRATIVE: CASE EVENT DATE: 20240312
